FAERS Safety Report 8228950-9 (Version None)
Quarter: 2012Q1

REPORT INFORMATION
  Report Type: 
  Country: None (occurrence: None)
  Receive Date: 20120322
  Receipt Date: 20120319
  Transmission Date: 20120608
  Serious: Yes (Other)
  Sender: FDA-Public Use
  Company Number: BR-ABBOTT-09P-020-0500900-00

PATIENT
  Sex: Female
  Weight: 52 kg

DRUGS (16)
  1. CELECOXIB [Concomitant]
     Indication: ANTIINFLAMMATORY THERAPY
     Route: 048
  2. FOLIC ACID [Concomitant]
     Indication: PRODUCT USED FOR UNKNOWN INDICATION
     Route: 048
  3. ACETAMINOPHEN AND TRAMADOL HCL [Concomitant]
     Indication: PAIN
     Route: 048
  4. PANTOPRAZOLE [Concomitant]
     Indication: GASTRIC DISORDER
     Route: 048
     Dates: start: 20070101
  5. HUMIRA [Suspect]
  6. CALCIUM CARBONATE W/VITAMIN D [Concomitant]
     Indication: PRODUCT USED FOR UNKNOWN INDICATION
     Route: 048
  7. DIPYRONE INJ [Concomitant]
     Indication: PAIN
     Route: 048
  8. LOSARTAN POTASSIUM [Concomitant]
     Indication: BLOOD PRESSURE
     Route: 048
     Dates: start: 20080101
  9. NIMESULIDE [Concomitant]
     Indication: RHEUMATOID ARTHRITIS
     Route: 048
     Dates: start: 20100101
  10. LEVEL [Concomitant]
     Indication: CONTRACEPTION
     Route: 048
     Dates: start: 20090101
  11. ACETAMINOPHEN [Concomitant]
     Indication: PRODUCT USED FOR UNKNOWN INDICATION
     Route: 048
     Dates: start: 20070101
  12. HUMIRA [Suspect]
     Indication: RHEUMATOID ARTHRITIS
     Route: 058
     Dates: start: 20070201
  13. METHOTREXATE [Concomitant]
     Indication: PRODUCT USED FOR UNKNOWN INDICATION
     Route: 048
  14. METICORTEN [Concomitant]
     Indication: RHEUMATOID ARTHRITIS
     Route: 048
  15. DIPYRONE INJ [Concomitant]
     Route: 048
  16. OMEPRAZOLE [Concomitant]
     Indication: GASTRIC DISORDER
     Route: 048

REACTIONS (14)
  - ARRHYTHMIA [None]
  - INFLUENZA [None]
  - INJECTION SITE PAIN [None]
  - HIP ARTHROPLASTY [None]
  - ARTHRALGIA [None]
  - URINARY TRACT INFECTION [None]
  - PAIN IN EXTREMITY [None]
  - OSTEOARTHRITIS [None]
  - ARTHRITIS [None]
  - HYPERTENSION [None]
  - DERMATITIS ALLERGIC [None]
  - CARDIAC DISORDER [None]
  - COUGH [None]
  - SWELLING [None]
